FAERS Safety Report 15621028 (Version 2)
Quarter: 2018Q4

REPORT INFORMATION
  Report Type: Report from Study
  Country: AU (occurrence: AU)
  Receive Date: 20181115
  Receipt Date: 20181207
  Transmission Date: 20190205
  Serious: Yes (Other)
  Sender: FDA-Public Use
  Company Number: AU-AMGEN-AUSSP2018159333

PATIENT
  Age: 41 Year
  Sex: Male

DRUGS (2)
  1. BLINCYTO [Suspect]
     Active Substance: BLINATUMOMAB
     Indication: PRECURSOR B-LYMPHOBLASTIC LYMPHOMA REFRACTORY
     Dosage: UNK
     Route: 065
     Dates: start: 201707
  2. CICLOSPORIN [Concomitant]
     Active Substance: CYCLOSPORINE
     Dosage: UNK

REACTIONS (2)
  - Acute lymphocytic leukaemia recurrent [Unknown]
  - Cytomegalovirus infection [Unknown]

NARRATIVE: CASE EVENT DATE: 201801
